FAERS Safety Report 9911915 (Version 1)
Quarter: 2014Q1

REPORT INFORMATION
  Report Type: Spontaneous
  Country: US (occurrence: US)
  Receive Date: 20140219
  Receipt Date: 20140219
  Transmission Date: 20141002
  Serious: No
  Sender: FDA-Public Use
  Company Number: US-MYLANLABS-2013S1018870

PATIENT
  Age: 21 Year
  Sex: Female

DRUGS (2)
  1. EPIPEN [Suspect]
     Indication: ASTHMA
     Dosage: 0.3 MG, AS NEEDED
     Route: 030
  2. ALBUTEROL [Concomitant]
     Indication: ASTHMA
     Dosage: PRN, UNK
     Route: 055

REACTIONS (4)
  - Injection site pain [Recovered/Resolved]
  - Expired drug administered [Unknown]
  - Asthma [None]
  - Vasoconstriction [None]
